FAERS Safety Report 26127052 (Version 1)
Quarter: 2025Q4

REPORT INFORMATION
  Report Type: Spontaneous
  Country: US (occurrence: None)
  Receive Date: 20251205
  Receipt Date: 20251205
  Transmission Date: 20260117
  Serious: No
  Sender: FDA-CTU
  Company Number: None

PATIENT

DRUGS (1)
  1. NUCALA [Suspect]
     Active Substance: MEPOLIZUMAB

REACTIONS (6)
  - Arthralgia [None]
  - Fatigue [None]
  - Atrial fibrillation [None]
  - Cardiac failure congestive [None]
  - Product dose omission in error [None]
  - Insurance issue [None]
